FAERS Safety Report 20686445 (Version 1)
Quarter: 2022Q2

REPORT INFORMATION
  Report Type: Report from Study
  Country: US (occurrence: US)
  Receive Date: 20220407
  Receipt Date: 20220407
  Transmission Date: 20220720
  Serious: Yes (Hospitalization)
  Sender: FDA-Public Use
  Company Number: US-BAUSCH-BL-2022-008599

PATIENT
  Age: 62 Year
  Sex: Male

DRUGS (9)
  1. XIFAXAN [Suspect]
     Active Substance: RIFAXIMIN
     Indication: Product used for unknown indication
     Dosage: TAKE 1 TABLET 500 MG TOTAL TABLET BY MOUTH EVERY 12 HRS REPORTED ON 22/MAR/2022)
     Route: 048
  2. FOLIC ACID [Concomitant]
     Active Substance: FOLIC ACID
     Indication: Product used for unknown indication
     Dosage: TAKE ONE TABLET 30 TABLET BY MOUTH EVERY DAY (PATIENT TAKING DIFFERENTLY. 1 MG EVERY MORNING )
     Route: 048
  3. MAGNESIUM OXIDE [Concomitant]
     Active Substance: MAGNESIUM OXIDE
     Indication: Product used for unknown indication
     Dosage: TAKE 400 MG BY MOUTH 2 (TWO) TIMES A DAY
     Route: 048
  4. ROBAXIN [Concomitant]
     Active Substance: METHOCARBAMOL
     Indication: Muscle spasms
     Dosage: TAKE 1 TABLET (500 180 TABLET  MG TOTAL) BY MOUTH 3 (THREE) TIMES A DAY (MAY TAKE 1000 MG AS NEEDED)
     Route: 048
  5. PANTOPRAZOLE [Concomitant]
     Active Substance: PANTOPRAZOLE
     Indication: Product used for unknown indication
     Dosage: TAKE ONE TABLET EO TABLET BY MOUTH EVERY 12 HOURS (PATIENT ?TAKING DIFFERENTLY 700MG )
     Route: 048
  6. SPIRONOLACTONE [Concomitant]
     Active Substance: SPIRONOLACTONE
     Indication: Product used for unknown indication
     Dosage: TAKE ONE TABLET 30 TABLET BY MOUTH EVERY DAY (PATIENT TAKING DIFFERENTLY. 50 MG EVERY MORNING )
     Route: 048
  7. THIAMINE [Concomitant]
     Active Substance: THIAMINE
     Indication: Product used for unknown indication
     Dosage: TAKE 100MG  BY MOUTH EVERY DAY MORNING
     Route: 048
  8. DEMADEX [Concomitant]
     Active Substance: TORSEMIDE
     Indication: Product used for unknown indication
     Dosage: TAKE 20MG  BY MOUTH 2 TIMES A  DAY MORNING
     Route: 048
  9. LACTULOSE [Concomitant]
     Active Substance: LACTULOSE
     Indication: Product used for unknown indication
     Dosage: (10G/15ML) 20GM TOTAL BY MOUTH 4 TIMES A DAY BUT PATIENT TAKING 20G MOUTH 2 TIMES A DAY
     Route: 048

REACTIONS (3)
  - Hepatic encephalopathy [Recovering/Resolving]
  - Abdominal pain upper [Unknown]
  - Therapy interrupted [Unknown]
